FAERS Safety Report 25361209 (Version 1)
Quarter: 2025Q2

REPORT INFORMATION
  Report Type: Spontaneous
  Country: PT (occurrence: PT)
  Receive Date: 20250527
  Receipt Date: 20250527
  Transmission Date: 20250717
  Serious: Yes (Other)
  Sender: INDOCO REMEDIES LIMITED
  Company Number: PT-INDOCO-IND-2025-PT-LIT-00576

PATIENT
  Age: 39 Year
  Sex: Male

DRUGS (1)
  1. APIXABAN [Suspect]
     Active Substance: APIXABAN
     Indication: Atrial thrombosis
     Route: 048

REACTIONS (1)
  - Splenic infarction [Unknown]
